FAERS Safety Report 6754814-3 (Version None)
Quarter: 2010Q2

REPORT INFORMATION
  Report Type: 
  Country: None (occurrence: None)
  Receive Date: 20100527
  Receipt Date: 20100511
  Transmission Date: 20101027
  Serious: Yes (Disabling)
  Sender: FDA-Public Use
  Company Number: BCN-AS-2010-RR-145

PATIENT
  Age: 70 Year
  Sex: Male

DRUGS (10)
  1. ASPIRIN [Suspect]
     Dosage: 75MG, QD
  2. MEROPENEM [Concomitant]
  3. TEICOPLANIN [Concomitant]
  4. CIPROFLOXACIN [Concomitant]
  5. CLOPIDOGREL [Concomitant]
  6. EYTHROMYCIN [Concomitant]
  7. MEROPENEM [Concomitant]
  8. METRONIDAZOLE [Concomitant]
  9. TEICOPLANIN [Concomitant]
  10. WARFARIN [Concomitant]

REACTIONS (12)
  - CELLULITIS [None]
  - DECREASED APPETITE [None]
  - DRUG INEFFECTIVE [None]
  - DRUG INTERACTION [None]
  - HEADACHE [None]
  - HYPHAEMA [None]
  - INTERNATIONAL NORMALISED RATIO INCREASED [None]
  - INTRAOCULAR PRESSURE INCREASED [None]
  - NAUSEA [None]
  - POTENTIATING DRUG INTERACTION [None]
  - PYREXIA [None]
  - VISUAL ACUITY REDUCED [None]
